FAERS Safety Report 13791382 (Version 1)
Quarter: 2017Q3

REPORT INFORMATION
  Report Type: Spontaneous
  Country: US (occurrence: US)
  Receive Date: 20170725
  Receipt Date: 20170725
  Transmission Date: 20171127
  Serious: Yes (Hospitalization, Other)
  Sender: FDA-Public Use
  Company Number: US-TEVA-790879USA

PATIENT
  Age: 30 Year
  Sex: Female
  Weight: 50 kg

DRUGS (11)
  1. LAMIVUDINE. [Concomitant]
     Active Substance: LAMIVUDINE
     Dates: start: 20110202
  2. PAS [Suspect]
     Active Substance: AMINOSALICYLIC ACID
     Indication: PRODUCT USED FOR UNKNOWN INDICATION
  3. LEVOFLOXACIN. [Suspect]
     Active Substance: LEVOFLOXACIN
     Indication: PRODUCT USED FOR UNKNOWN INDICATION
     Dosage: 750 MILLIGRAM DAILY;
     Route: 048
     Dates: start: 20160217
  4. ABACAVIR. [Concomitant]
     Active Substance: ABACAVIR
     Dates: start: 20110202
  5. PYRAZINAMIDE. [Suspect]
     Active Substance: PYRAZINAMIDE
     Indication: PRODUCT USED FOR UNKNOWN INDICATION
     Dosage: 1500 MILLIGRAM DAILY;
     Route: 048
     Dates: start: 20160301
  6. DELAMANID [Suspect]
     Active Substance: DELAMANID
     Indication: PRODUCT USED FOR UNKNOWN INDICATION
     Dosage: 200 MILLIGRAM DAILY;
     Route: 048
     Dates: start: 20160809, end: 20170211
  7. PAS [Suspect]
     Active Substance: AMINOSALICYLIC ACID
     Indication: PRODUCT USED FOR UNKNOWN INDICATION
     Dosage: 8000 MILLIGRAM DAILY;
     Route: 048
     Dates: start: 20160217
  8. LINEZOLID. [Suspect]
     Active Substance: LINEZOLID
     Dosage: 600 MILLIGRAM DAILY;
     Route: 048
     Dates: start: 20160809
  9. CLOFAZIMINE [Suspect]
     Active Substance: CLOFAZIMINE
     Indication: PRODUCT USED FOR UNKNOWN INDICATION
     Dosage: 100 MILLIGRAM DAILY;
     Route: 048
     Dates: start: 20160809
  10. EFAVIRENZ [Concomitant]
     Active Substance: EFAVIRENZ
     Indication: ANTIRETROVIRAL THERAPY
     Dates: start: 20110202
  11. DELAMANID [Suspect]
     Active Substance: DELAMANID
     Indication: PRODUCT USED FOR UNKNOWN INDICATION

REACTIONS (1)
  - Hypokalaemia [Recovered/Resolved]

NARRATIVE: CASE EVENT DATE: 20170608
